FAERS Safety Report 5761877-0 (Version None)
Quarter: 2008Q2

REPORT INFORMATION
  Report Type: 
  Country: None (occurrence: None)
  Receive Date: 20080602
  Receipt Date: 20080527
  Transmission Date: 20081010
  Serious: Yes (Other)
  Sender: FDA-Public Use
  Company Number: 2008SP009507

PATIENT
  Age: 56 Year
  Sex: Female
  Weight: 66.6788 kg

DRUGS (2)
  1. CLARITIN [Suspect]
     Indication: COUGH
     Dosage: 10 MG; QD; PO
     Route: 048
     Dates: start: 20080426, end: 20080512
  2. CLARITIN [Suspect]
     Indication: HYPERSENSITIVITY
     Dosage: 10 MG; QD; PO
     Route: 048
     Dates: start: 20080426, end: 20080512

REACTIONS (3)
  - DYSPNOEA [None]
  - GLOSSODYNIA [None]
  - SWOLLEN TONGUE [None]
